FAERS Safety Report 19932580 (Version 1)
Quarter: 2021Q4

REPORT INFORMATION
  Report Type: Spontaneous
  Country: US (occurrence: US)
  Receive Date: 20211007
  Receipt Date: 20211007
  Transmission Date: 20220304
  Serious: No
  Sender: FDA-Public Use
  Company Number: None

PATIENT
  Age: 33 Year
  Sex: Male
  Weight: 90 kg

DRUGS (6)
  1. MUCUS RELIEF [Suspect]
     Active Substance: GUAIFENESIN
     Indication: Upper-airway cough syndrome
     Dosage: ?          QUANTITY:1 CAPSULE(S);
     Route: 048
  2. MUCUS RELIEF [Suspect]
     Active Substance: GUAIFENESIN
     Indication: Productive cough
  3. CETIRIZINE HYDROCHLORIDE [Concomitant]
     Active Substance: CETIRIZINE HYDROCHLORIDE
  4. PHENYLEPHRINE HCL [Concomitant]
     Active Substance: PHENYLEPHRINE HYDROCHLORIDE
  5. GUAIFENESIN [Concomitant]
     Active Substance: GUAIFENESIN
  6. TYLENOL [Concomitant]
     Active Substance: ACETAMINOPHEN

REACTIONS (2)
  - Product dispensing error [None]
  - Product complaint [None]

NARRATIVE: CASE EVENT DATE: 20210906
